FAERS Safety Report 18242006 (Version 1)
Quarter: 2020Q3

REPORT INFORMATION
  Report Type: Spontaneous
  Country: US (occurrence: US)
  Receive Date: 20200908
  Receipt Date: 20200908
  Transmission Date: 20201103
  Serious: Yes (Hospitalization)
  Sender: FDA-Public Use
  Company Number: None

PATIENT
  Age: 17 Year
  Sex: Male

DRUGS (7)
  1. FOLIC ACID TABLET 40MG [Concomitant]
     Dates: start: 20200828
  2. PREDNISONE TABLET 20MG [Concomitant]
     Active Substance: PREDNISONE
     Dates: start: 20200731
  3. HUMIRA [Suspect]
     Active Substance: ADALIMUMAB
     Indication: CROHN^S DISEASE
     Dosage: ?          OTHER FREQUENCY:2=DAY 1, 1=DAY 15;?
     Route: 058
     Dates: start: 20200821
  4. BUDESONIDE CAPSULE 3MG [Concomitant]
     Dates: start: 20200830
  5. VITAMIN C TABLET 250MG [Concomitant]
     Dates: start: 20200902
  6. FEROSUL TABLET 325MG [Concomitant]
     Dates: start: 20200902
  7. OMEPRAZOLE CAPSULE 20MG [Concomitant]

REACTIONS (3)
  - Abdominal pain upper [None]
  - Haematochezia [None]
  - Diarrhoea [None]

NARRATIVE: CASE EVENT DATE: 20200814
